FAERS Safety Report 22936981 (Version 3)
Quarter: 2023Q4

REPORT INFORMATION
  Report Type: Report from Study
  Country: JP (occurrence: JP)
  Receive Date: 20230912
  Receipt Date: 20231003
  Transmission Date: 20240110
  Serious: Yes (Other)
  Sender: FDA-Public Use
  Company Number: JP-SA-2023SA273139

PATIENT
  Age: 39 Year
  Sex: Female
  Weight: 55.4 kg

DRUGS (21)
  1. CAPLACIZUMAB [Suspect]
     Active Substance: CAPLACIZUMAB
     Indication: Thrombotic thrombocytopenic purpura
     Dosage: DAILY DOSE: 10 MG
     Route: 042
     Dates: start: 20230308, end: 20230308
  2. CAPLACIZUMAB [Suspect]
     Active Substance: CAPLACIZUMAB
     Dosage: DAILY DOSE: 10 MG
     Route: 058
     Dates: start: 20230308, end: 20230308
  3. CAPLACIZUMAB [Suspect]
     Active Substance: CAPLACIZUMAB
     Dosage: DAILY DOSE: 10 MG
     Route: 058
     Dates: start: 20230309, end: 20230310
  4. CAPLACIZUMAB [Suspect]
     Active Substance: CAPLACIZUMAB
     Dosage: DAILY DOSE: 10 MG
     Route: 058
     Dates: start: 20230311, end: 20230409
  5. ASPIRIN [Suspect]
     Active Substance: ASPIRIN
     Indication: Product used for unknown indication
     Dosage: UNK
     Route: 065
     Dates: start: 20230303
  6. RITUXIMAB [Suspect]
     Active Substance: RITUXIMAB
     Indication: Thrombotic thrombocytopenic purpura
     Dosage: 375 MG/M2, QW
     Route: 065
     Dates: start: 20230313, end: 20230321
  7. RITUXIMAB [Suspect]
     Active Substance: RITUXIMAB
     Dosage: 90 MG, QW
     Route: 065
     Dates: start: 20230329, end: 20230329
  8. PREDONINE [Concomitant]
     Active Substance: PREDNISOLONE
     Indication: Thrombotic thrombocytopenic purpura
     Dosage: 50 MG, QD
     Route: 065
     Dates: start: 20230308, end: 20230314
  9. PREDNISOLONE [Concomitant]
     Active Substance: PREDNISOLONE
     Indication: Thrombotic thrombocytopenic purpura
     Dosage: 25 MG, BID
     Route: 048
     Dates: start: 20230315, end: 20230324
  10. PREDNISOLONE [Concomitant]
     Active Substance: PREDNISOLONE
     Dosage: 20 MG, BID
     Route: 048
     Dates: start: 20230325, end: 20230402
  11. PREDNISOLONE [Concomitant]
     Active Substance: PREDNISOLONE
     Dosage: 15 MG, BID
     Route: 048
     Dates: start: 20230403, end: 20230409
  12. PREDNISOLONE [Concomitant]
     Active Substance: PREDNISOLONE
     Dosage: 15 MG, QD
     Route: 048
     Dates: start: 20230410, end: 20230423
  13. PREDNISOLONE [Concomitant]
     Active Substance: PREDNISOLONE
     Dosage: 10 MG, QD
     Route: 048
     Dates: start: 20230410, end: 20230423
  14. PREDNISOLONE [Concomitant]
     Active Substance: PREDNISOLONE
     Dosage: 10 MG, BID
     Route: 048
     Dates: start: 20230424, end: 20230521
  15. PREDNISOLONE [Concomitant]
     Active Substance: PREDNISOLONE
     Dosage: 10 MG, QD
     Route: 048
     Dates: start: 20230522, end: 20230604
  16. PREDNISOLONE [Concomitant]
     Active Substance: PREDNISOLONE
     Dosage: 5 MG, QD
     Route: 048
     Dates: start: 20230522, end: 20230702
  17. PREDNISOLONE [Concomitant]
     Active Substance: PREDNISOLONE
     Dosage: 8 MG, QD
     Route: 048
     Dates: start: 20230605, end: 20230702
  18. PREDNISOLONE [Concomitant]
     Active Substance: PREDNISOLONE
     Dosage: 5 MG, BID
     Route: 048
     Dates: start: 20230703
  19. ASPIRIN [Concomitant]
     Active Substance: ASPIRIN
     Indication: Thrombosis prophylaxis
     Dosage: DAILY DOSE: 100 MG
     Route: 065
     Dates: start: 20230310
  20. RABEPRAZOLE SODIUM [Concomitant]
     Active Substance: RABEPRAZOLE SODIUM
     Indication: Gastritis prophylaxis
     Dosage: UNK
     Route: 065
     Dates: start: 20230308
  21. SULFAMETHOXAZOLE\TRIMETHOPRIM [Concomitant]
     Active Substance: SULFAMETHOXAZOLE\TRIMETHOPRIM
     Indication: Antifungal prophylaxis
     Dosage: UNK
     Route: 048
     Dates: start: 20230309

REACTIONS (7)
  - Anaphylactic reaction [Recovered/Resolved]
  - Skin discolouration [Unknown]
  - Headache [Unknown]
  - Dyspnoea [Unknown]
  - Infusion related reaction [Recovered/Resolved]
  - Infusion related reaction [Recovered/Resolved]
  - Infusion related reaction [Recovered/Resolved]

NARRATIVE: CASE EVENT DATE: 20230309
